FAERS Safety Report 24039720 (Version 1)
Quarter: 2024Q3

REPORT INFORMATION
  Report Type: Spontaneous
  Country: RO (occurrence: RO)
  Receive Date: 20240702
  Receipt Date: 20240702
  Transmission Date: 20241017
  Serious: Yes (Other)
  Sender: RANBAXY
  Company Number: RO-SUN PHARMACEUTICAL INDUSTRIES LTD-2024R1-453808

PATIENT
  Age: 2 Year
  Sex: Male

DRUGS (12)
  1. LORATADINE [Suspect]
     Active Substance: LORATADINE
     Indication: Alagille syndrome
     Route: 065
  2. LORATADINE [Suspect]
     Active Substance: LORATADINE
     Indication: Anterior chamber cleavage syndrome
  3. VITAMIN B COMPLEX [Suspect]
     Active Substance: CYANOCOBALAMIN\DEXPANTHENOL\NIACINAMIDE\PYRIDOXINE HYDROCHLORIDE\RIBOFLAVIN 5^-PHOSPHATE SODIUM\THIA
     Indication: Alagille syndrome
     Route: 065
  4. VITAMIN B COMPLEX [Suspect]
     Active Substance: CYANOCOBALAMIN\DEXPANTHENOL\NIACINAMIDE\PYRIDOXINE HYDROCHLORIDE\RIBOFLAVIN 5^-PHOSPHATE SODIUM\THIA
     Indication: Anterior chamber cleavage syndrome
  5. RIFAMPIN [Suspect]
     Active Substance: RIFAMPIN
     Indication: Alagille syndrome
     Route: 065
  6. RIFAMPIN [Suspect]
     Active Substance: RIFAMPIN
     Indication: Anterior chamber cleavage syndrome
  7. VITAMIN D [Suspect]
     Active Substance: VITAMIN D NOS
     Indication: Alagille syndrome
     Route: 065
  8. VITAMIN D [Suspect]
     Active Substance: VITAMIN D NOS
     Indication: Anterior chamber cleavage syndrome
  9. VITAMIN K [Suspect]
     Active Substance: PHYTONADIONE
     Indication: Alagille syndrome
     Route: 065
  10. VITAMIN K [Suspect]
     Active Substance: PHYTONADIONE
     Indication: Anterior chamber cleavage syndrome
  11. MALTODEXTRIN [Suspect]
     Active Substance: MALTODEXTRIN
     Indication: Alagille syndrome
     Route: 065
  12. MALTODEXTRIN [Suspect]
     Active Substance: MALTODEXTRIN
     Indication: Anterior chamber cleavage syndrome

REACTIONS (1)
  - Disease progression [Unknown]
